FAERS Safety Report 8666913 (Version 2)
Quarter: 2013Q1

REPORT INFORMATION
  Report Type: Report from Study
  Country: BR (occurrence: BR)
  Receive Date: 20120716
  Receipt Date: 20130208
  Transmission Date: 20140127
  Serious: Yes (Death)
  Sender: FDA-Public Use
  Company Number: BR-ROCHE-1086692

PATIENT
  Sex: Female
  Weight: 35 kg

DRUGS (1)
  1. RITUXIMAB [Suspect]
     Indication: RHEUMATOID ARTHRITIS
     Route: 065
     Dates: start: 20120213, end: 20120227

REACTIONS (3)
  - Septic shock [Fatal]
  - Bronchopneumonia [Fatal]
  - Mental impairment [Fatal]
